FAERS Safety Report 9301064 (Version 1)
Quarter: 2013Q2

REPORT INFORMATION
  Report Type: Spontaneous
  Country: BE (occurrence: BE)
  Receive Date: 20130521
  Receipt Date: 20130521
  Transmission Date: 20140414
  Serious: Yes (Death)
  Sender: FDA-Public Use
  Company Number: BE-UCBSA-086034

PATIENT
  Age: 14 Month
  Sex: Male

DRUGS (13)
  1. LEVETIRACETAM [Suspect]
     Indication: PARTIAL SEIZURES
     Dosage: 10 MG/KG/DAY,
     Route: 048
  2. LEVETIRACETAM [Suspect]
     Indication: PARTIAL SEIZURES
     Dosage: 30 MG/KG/DAY,
     Route: 048
  3. PHENYTOIN [Concomitant]
     Indication: CONVULSION
  4. CLONAZEPAM [Concomitant]
     Indication: PARTIAL SEIZURES
  5. CLONAZEPAM [Concomitant]
     Indication: CONVULSION
  6. PHENOBARBITAL [Concomitant]
     Indication: CONVULSION
  7. PHENOBARBITAL [Concomitant]
     Indication: PARTIAL SEIZURES
  8. MIDAZOLAM [Concomitant]
     Indication: CONVULSION
  9. VIGABATRIN [Concomitant]
     Indication: CONVULSION
  10. LAMOTRIGINE [Concomitant]
     Indication: PARTIAL SEIZURES
  11. LAMOTRIGINE [Concomitant]
     Indication: CONVULSION
  12. PYRIDOXINE [Concomitant]
     Indication: CONVULSION
  13. POTASSIUM BROMIDE [Concomitant]
     Indication: PARTIAL SEIZURES

REACTIONS (1)
  - Death [Fatal]
